FAERS Safety Report 5309707-5 (Version None)
Quarter: 2007Q2

REPORT INFORMATION
  Report Type: 
  Country: None (occurrence: None)
  Receive Date: 20070427
  Receipt Date: 20060420
  Transmission Date: 20071010
  Serious: No
  Sender: FDA-Public Use
  Company Number: US-GLAXOSMITHKLINE-A0600342A

PATIENT
  Age: 20 Year
  Sex: Female

DRUGS (3)
  1. ZOFRAN [Suspect]
     Indication: HYPEREMESIS GRAVIDARUM
     Dosage: 4MG AS REQUIRED
     Route: 042
     Dates: start: 20060317
  2. SODIUM CHLORIDE 0.9% [Concomitant]
  3. HEPARIN LOCK-FLUSH [Concomitant]

REACTIONS (5)
  - DRUG EXPOSURE DURING PREGNANCY [None]
  - INJECTION SITE ERYTHEMA [None]
  - INJECTION SITE IRRITATION [None]
  - INJECTION SITE RASH [None]
  - VEIN DISCOLOURATION [None]
